FAERS Safety Report 9090449 (Version 1)
Quarter: 2013Q1

REPORT INFORMATION
  Report Type: Report from Study
  Country: US (occurrence: US)
  Receive Date: 20130201
  Receipt Date: 20130201
  Transmission Date: 20140127
  Serious: No
  Sender: FDA-Public Use
  Company Number: US-ABBOTT-13P-163-1030545-00

PATIENT
  Age: 57 Year
  Sex: Female

DRUGS (1)
  1. HUMIRA [Suspect]
     Indication: RHEUMATOID ARTHRITIS
     Route: 058
     Dates: start: 20121005, end: 20121219

REACTIONS (7)
  - Swelling [Unknown]
  - Drug ineffective [Unknown]
  - Dizziness [Unknown]
  - Urinary tract infection [Unknown]
  - Fall [Unknown]
  - Wrist fracture [Unknown]
  - Pain [Unknown]
